FAERS Safety Report 5678154-9 (Version None)
Quarter: 2008Q1

REPORT INFORMATION
  Report Type: 
  Country: None (occurrence: None)
  Receive Date: 20080319
  Receipt Date: 20080305
  Transmission Date: 20080703
  Serious: Yes (Other)
  Sender: FDA-Public Use
  Company Number: 8030723

PATIENT
  Sex: Female

DRUGS (2)
  1. KEPPRA [Suspect]
  2. TOPAMAX [Concomitant]

REACTIONS (3)
  - GALLBLADDER DISORDER [None]
  - HEPATIC ENZYME INCREASED [None]
  - RENAL CYST [None]
